FAERS Safety Report 5292364-4 (Version None)
Quarter: 2007Q2

REPORT INFORMATION
  Report Type: 
  Country: None (occurrence: None)
  Receive Date: 20070410
  Receipt Date: 20070405
  Transmission Date: 20071010
  Serious: Yes (Death)
  Sender: FDA-Public Use
  Company Number: CA-BOEHRINGER INGELHEIM GMBH, GERMANY-2007-CN-00279CN

PATIENT
  Age: 52 Year
  Sex: Male

DRUGS (7)
  1. SPIRIVA [Suspect]
     Indication: CHRONIC OBSTRUCTIVE PULMONARY DISEASE
  2. DILANTIN [Concomitant]
  3. GEN-ALPRAZOLAM [Concomitant]
  4. PANTOPRAZOLE SODIUM [Concomitant]
  5. NOVO-TEMAZEPAM [Concomitant]
  6. SYNTHROID [Concomitant]
  7. PERINDOPRIL ERBUMINE [Concomitant]

REACTIONS (1)
  - DEATH [None]
